FAERS Safety Report 9669870 (Version 2)
Quarter: 2013Q4

REPORT INFORMATION
  Report Type: Report from Study
  Country: KR (occurrence: KR)
  Receive Date: 20131105
  Receipt Date: 20131105
  Transmission Date: 20140711
  Serious: No
  Sender: FDA-Public Use
  Company Number: PHHY2012KR114670

PATIENT
  Age: 71 Year
  Sex: Female

DRUGS (10)
  1. AMN107 [Suspect]
     Indication: CHRONIC MYELOID LEUKAEMIA
     Dosage: 400 MG, QD
     Route: 048
     Dates: start: 20120903, end: 20120918
  2. AMN107 [Suspect]
     Dosage: 800 MG, QD
     Route: 048
     Dates: start: 20120919, end: 20121003
  3. AMN107 [Suspect]
     Dosage: 400 MG, QD
     Route: 048
     Dates: start: 20121004, end: 20121221
  4. AMN107 [Suspect]
     Dosage: 200 MG, QD
     Route: 048
     Dates: start: 20121222, end: 20130103
  5. RANITIDINE [Concomitant]
     Indication: ULCER
     Dosage: 3 DF, DAY
     Route: 048
     Dates: start: 20121004, end: 20121010
  6. PREDNISOLONE [Concomitant]
     Indication: OEDEMA
     Dosage: 20 MG, DAY
     Route: 048
     Dates: start: 20121004, end: 20121010
  7. PREDNISOLONE [Concomitant]
     Indication: RASH
  8. ALBIS [Concomitant]
     Indication: ULCER
     Dosage: 3 DF, QD
     Route: 048
     Dates: start: 20121004, end: 20121010
  9. ALBIS [Concomitant]
     Indication: GASTRITIS
  10. GRASIN [Concomitant]
     Indication: THROMBOCYTOPENIA
     Dosage: 300 UG, UNK
     Route: 042
     Dates: start: 20130118

REACTIONS (1)
  - Blood cholesterol increased [Not Recovered/Not Resolved]
